FAERS Safety Report 5623695-3 (Version None)
Quarter: 2008Q1

REPORT INFORMATION
  Report Type: 
  Country: None (occurrence: None)
  Receive Date: 20080129
  Receipt Date: 20070716
  Transmission Date: 20080703
  Serious: Yes (Other)
  Sender: FDA-Public Use
  Company Number: WAES 0707USA02641

PATIENT
  Sex: Female

DRUGS (14)
  1. PRIMAXIN [Suspect]
     Dosage: 500 MG/Q8H, IV
     Route: 042
     Dates: start: 20070429
  2. COREG [Concomitant]
  3. HEPARIN SODIUM [Concomitant]
  4. MOTRIN [Concomitant]
  5. NEURONTIN [Concomitant]
  6. PERCOCET [Concomitant]
  7. PROTONIX [Concomitant]
  8. QUESTRAN [Concomitant]
  9. ZOCOR [Concomitant]
  10. ZOLOFT [Concomitant]
  11. DOCUSATE SODIUM [Concomitant]
  12. FERROUS SULFATE TAB [Concomitant]
  13. LIDOCAINE [Concomitant]
  14. METRONIDAZOLE HCL [Concomitant]

REACTIONS (2)
  - CHEST PAIN [None]
  - CONVULSION [None]
